FAERS Safety Report 9101027 (Version 1)
Quarter: 2013Q1

REPORT INFORMATION
  Report Type: Spontaneous
  Country: US (occurrence: None)
  Receive Date: 20130220
  Receipt Date: 20130220
  Transmission Date: 20140127
  Serious: No
  Sender: FDA-Public Use
  Company Number: None

PATIENT
  Sex: 0

DRUGS (2)
  1. PRAVASTATIN [Suspect]
     Route: 048
  2. PAROXETINE  HCL [Suspect]
     Route: 048

REACTIONS (2)
  - Drug dispensing error [None]
  - Confusional state [None]
